FAERS Safety Report 8870818 (Version 1)
Quarter: 2012Q4

REPORT INFORMATION
  Report Type: 
  Country: US (occurrence: US)
  Receive Date: 20121026
  Receipt Date: 20121026
  Transmission Date: 20130627
  Serious: No
  Sender: FDA-Public Use
  Company Number: US-AMGEN-USASP2012046820

PATIENT
  Age: 56 Year
  Sex: Female

DRUGS (11)
  1. ENBREL [Suspect]
     Indication: PSORIATIC ARTHROPATHY
     Dosage: 50 mg, qwk
     Route: 058
  2. METHOTREXATE [Concomitant]
     Dosage: 2.5 mg, UNK PO
  3. ZYRTEC [Concomitant]
     Dosage: 10 mg, UNK PO
  4. LIPITOR [Concomitant]
     Dosage: 10 mg, UNK PO
  5. HYDROXYCHLOROQUINE [Concomitant]
     Dosage: 200 mg, UNK PO
  6. FOLIC ACID [Concomitant]
     Dosage: 1 mg, UNK PO
  7. HYDROCHLOROTH [Concomitant]
     Dosage: 12.5 mg, UNK PO
  8. PREVACID [Concomitant]
     Dosage: 30 mg, UNK DR PO
  9. MIRAPEX [Concomitant]
     Dosage: 0.375 mg, UNK PO
  10. VITAMIN B 12 [Concomitant]
     Dosage: 1000 mug, UNK PO
  11. FISH OIL [Concomitant]
     Dosage: UNK
     Route: 048

REACTIONS (1)
  - Drug ineffective [Unknown]
